FAERS Safety Report 6984905-3 (Version None)
Quarter: 2010Q3

REPORT INFORMATION
  Report Type: 
  Country: None (occurrence: None)
  Receive Date: 20100913
  Receipt Date: 20100826
  Transmission Date: 20110219
  Serious: Yes (Death, Hospitalization, Other)
  Sender: FDA-Public Use
  Company Number: DSA_43836_2010

PATIENT
  Sex: Male
  Weight: 68.0396 kg

DRUGS (10)
  1. ATIVAN [Suspect]
     Indication: PRODUCT USED FOR UNKNOWN INDICATION
     Dosage: (NOT THE PRESCRIBED AMOUNT ORAL)
     Route: 048
     Dates: start: 20090122, end: 20090122
  2. DEPAKOTE [Suspect]
     Indication: BIPOLAR DISORDER
     Dosage: (500 MG, 1500 MG DAILY, ORAL) (13500 MG 1X, NOT THE PRESCRIBED AMOUNT), (500 MG QD ORAL)
     Route: 048
     Dates: start: 20080901, end: 20090122
  3. DEPAKOTE [Suspect]
     Indication: BIPOLAR DISORDER
     Dosage: (500 MG, 1500 MG DAILY, ORAL) (13500 MG 1X, NOT THE PRESCRIBED AMOUNT), (500 MG QD ORAL)
     Route: 048
     Dates: start: 20090122, end: 20090122
  4. DEPAKOTE [Suspect]
     Indication: BIPOLAR DISORDER
     Dosage: (500 MG, 1500 MG DAILY, ORAL) (13500 MG 1X, NOT THE PRESCRIBED AMOUNT), (500 MG QD ORAL)
     Route: 048
     Dates: start: 20090205, end: 20090209
  5. SEROQUEL [Suspect]
     Indication: BIPOLAR DISORDER
     Dosage: (350 MG DAILY ORAL), (3150 MG 1X, NOT THE PRESCRIBED AMOUNT ORAL), (100 MG QD ORAL)
     Route: 048
     Dates: start: 20080901, end: 20090122
  6. SEROQUEL [Suspect]
     Indication: BIPOLAR DISORDER
     Dosage: (350 MG DAILY ORAL), (3150 MG 1X, NOT THE PRESCRIBED AMOUNT ORAL), (100 MG QD ORAL)
     Route: 048
     Dates: start: 20090122, end: 20090122
  7. SEROQUEL [Suspect]
     Indication: BIPOLAR DISORDER
     Dosage: (350 MG DAILY ORAL), (3150 MG 1X, NOT THE PRESCRIBED AMOUNT ORAL), (100 MG QD ORAL)
     Route: 048
     Dates: start: 20090205, end: 20090209
  8. CELEXA [Concomitant]
  9. VISTARIL [Concomitant]
  10. IBUPROFEN [Concomitant]

REACTIONS (22)
  - AGGRESSION [None]
  - ANGER [None]
  - ANXIETY [None]
  - AREFLEXIA [None]
  - ASPHYXIA [None]
  - COMA [None]
  - CRYING [None]
  - DEPRESSION [None]
  - DISTURBANCE IN ATTENTION [None]
  - DRUG TOXICITY [None]
  - EMOTIONAL DISORDER [None]
  - FEAR [None]
  - IMPRISONMENT [None]
  - LETHARGY [None]
  - LOSS OF CONSCIOUSNESS [None]
  - OVERDOSE [None]
  - PHYSICAL ASSAULT [None]
  - SELF-MEDICATION [None]
  - SOMNOLENCE [None]
  - SUICIDAL IDEATION [None]
  - SUICIDE ATTEMPT [None]
  - WEIGHT DECREASED [None]
